FAERS Safety Report 6846102-1 (Version None)
Quarter: 2010Q3

REPORT INFORMATION
  Report Type: 
  Country: None (occurrence: None)
  Receive Date: 20100715
  Receipt Date: 20070910
  Transmission Date: 20110219
  Serious: No
  Sender: FDA-Public Use
  Company Number: US-PFIZER INC-2007073363

PATIENT
  Sex: Female

DRUGS (3)
  1. CHANTIX [Suspect]
     Indication: SMOKING CESSATION THERAPY
     Dates: start: 20070801
  2. ROZEREM [Concomitant]
     Indication: SLEEP DISORDER THERAPY
  3. AMBIEN [Concomitant]
     Indication: SLEEP DISORDER THERAPY

REACTIONS (2)
  - INSOMNIA [None]
  - WEIGHT DECREASED [None]
